FAERS Safety Report 19071092 (Version 2)
Quarter: 2021Q2

REPORT INFORMATION
  Report Type: Other
  Country: US (occurrence: US)
  Receive Date: 20210330
  Receipt Date: 20210426
  Transmission Date: 20210717
  Serious: Yes (Other)
  Sender: FDA-Public Use
  Company Number: US-ROCHE-2795075

PATIENT
  Sex: Female

DRUGS (11)
  1. XELODA [Suspect]
     Active Substance: CAPECITABINE
     Indication: MALIGNANT LYMPHOID NEOPLASM
  2. XELODA [Suspect]
     Active Substance: CAPECITABINE
     Indication: METASTASES TO BONE
  3. OMEPRAZOLE. [Concomitant]
     Active Substance: OMEPRAZOLE
  4. ZYRTEC (UNITED STATES) [Concomitant]
  5. SUMATRIPTAN. [Concomitant]
     Active Substance: SUMATRIPTAN
  6. XELODA [Suspect]
     Active Substance: CAPECITABINE
     Indication: BREAST CANCER FEMALE
     Dosage: TAKE 4 TABLETS BY MOUTH IN THE MORNING AND TAKE 5 TABLETS BY MOUTH IN THE EVENING FOR 7 DAYS ON, THE
     Route: 048
  7. XELODA [Suspect]
     Active Substance: CAPECITABINE
     Indication: METASTASIS
  8. PROVENTIL [Concomitant]
     Active Substance: ALBUTEROL
  9. PROMETHAZINE [Concomitant]
     Active Substance: PROMETHAZINE HYDROCHLORIDE
  10. METHADONE [Concomitant]
     Active Substance: METHADONE HYDROCHLORIDE
  11. ZOFRAN [Concomitant]
     Active Substance: ONDANSETRON HYDROCHLORIDE

REACTIONS (1)
  - Thrombosis [Unknown]
